FAERS Safety Report 5939087-3 (Version None)
Quarter: 2008Q4

REPORT INFORMATION
  Report Type: 
  Country: None (occurrence: None)
  Receive Date: 20081103
  Receipt Date: 20081027
  Transmission Date: 20090506
  Serious: Yes (Congenital Anomaly)
  Sender: FDA-Public Use
  Company Number: A0754647A

PATIENT

DRUGS (1)
  1. PAXIL [Suspect]
     Indication: DRUG USE FOR UNKNOWN INDICATION

REACTIONS (5)
  - CONGENITAL TRICUSPID VALVE ATRESIA [None]
  - DRUG EXPOSURE DURING PREGNANCY [None]
  - MULTIPLE CONGENITAL ABNORMALITIES [None]
  - TRANSPOSITION OF THE GREAT VESSELS [None]
  - VENTRICULAR SEPTAL DEFECT [None]
